FAERS Safety Report 22156482 (Version 1)
Quarter: 2023Q1

REPORT INFORMATION
  Report Type: Report from Study
  Country: IT (occurrence: IT)
  Receive Date: 20230330
  Receipt Date: 20230330
  Transmission Date: 20230418
  Serious: Yes (Life-Threatening, Hospitalization)
  Sender: FDA-Public Use
  Company Number: IT-BAYER-2023A039487

PATIENT
  Age: 42 Year
  Sex: Female
  Weight: 58 kg

DRUGS (7)
  1. REGORAFENIB [Suspect]
     Active Substance: REGORAFENIB
     Indication: Colorectal cancer metastatic
     Dosage: 160 MG
     Route: 048
     Dates: start: 20230220, end: 20230222
  2. ESCITALOPRAM [Concomitant]
     Active Substance: ESCITALOPRAM OXALATE
     Indication: Anxiety
     Dosage: 20 MG/ML, 4 DROP, QD
     Route: 048
     Dates: start: 20220913
  3. MYCOSTATIN [Concomitant]
     Active Substance: NYSTATIN
     Indication: Mucosal inflammation
     Dosage: 4 ML, QID
     Route: 048
     Dates: start: 20211221
  4. OXYCODONE [Concomitant]
     Active Substance: OXYCODONE
     Indication: Pain
     Dosage: 40 MG AND 20 MG, BID
     Route: 048
     Dates: start: 20220513
  5. FLURAZEPAM [Concomitant]
     Active Substance: FLURAZEPAM HYDROCHLORIDE
     Indication: Insomnia
     Dosage: 30 MG, QD
     Route: 048
     Dates: start: 20211221
  6. LANSOPRAZOLE [Concomitant]
     Active Substance: LANSOPRAZOLE
     Indication: Gastrointestinal disorder prophylaxis
     Dosage: 30 MG, QD
     Route: 048
     Dates: start: 20211207
  7. SULPIRIDE [Concomitant]
     Active Substance: SULPIRIDE
     Indication: Decreased appetite
     Dosage: 10 DROP, TID
     Route: 048
     Dates: start: 20220513

REACTIONS (4)
  - Hepatic failure [Not Recovered/Not Resolved]
  - Pyrexia [Recovered/Resolved]
  - Abdominal pain [Recovered/Resolved]
  - Sepsis [Recovered/Resolved]

NARRATIVE: CASE EVENT DATE: 20230223
